FAERS Safety Report 7018737-7 (Version None)
Quarter: 2010Q3

REPORT INFORMATION
  Report Type: 
  Country: None (occurrence: None)
  Receive Date: 20100928
  Receipt Date: 20100924
  Transmission Date: 20110219
  Serious: Yes (Hospitalization)
  Sender: FDA-Public Use
  Company Number: US-BRISTOL-MYERS SQUIBB COMPANY-15304728

PATIENT
  Sex: Male

DRUGS (3)
  1. ERBITUX [Suspect]
     Indication: HEAD AND NECK CANCER
     Dates: start: 20100726
  2. ABRAXANE [Suspect]
     Indication: HEAD AND NECK CANCER
     Dates: start: 20100726
  3. RADIATION THERAPY [Suspect]
     Indication: HEAD AND NECK CANCER
     Dates: start: 20100726

REACTIONS (2)
  - DYSPHAGIA [None]
  - SINUS TACHYCARDIA [None]
